FAERS Safety Report 25539401 (Version 1)
Quarter: 2025Q3

REPORT INFORMATION
  Report Type: Other
  Country: CN (occurrence: CN)
  Receive Date: 20250710
  Receipt Date: 20250710
  Transmission Date: 20251021
  Serious: Yes (Hospitalization)
  Sender: PARATEK PHARMACEUTICALS
  Company Number: CN-PARATEK PHARMACEUTICALS, INC.-2025PTK00839

PATIENT
  Age: 83 Year
  Sex: Male
  Weight: 70 kg

DRUGS (3)
  1. NUZYRA [Suspect]
     Active Substance: OMADACYCLINE
     Indication: Whipple^s disease
     Dosage: 0.1 G, QD
     Route: 041
     Dates: start: 20250605, end: 20250618
  2. NUZYRA [Suspect]
     Active Substance: OMADACYCLINE
     Indication: Acinetobacter infection
  3. METRONIDAZOLE [Concomitant]
     Active Substance: METRONIDAZOLE
     Dosage: 0.4 G, 3X/DAY
     Dates: start: 20250612, end: 20250613

REACTIONS (11)
  - Alanine aminotransferase increased [Unknown]
  - Aspartate aminotransferase increased [Unknown]
  - Blood bilirubin increased [Unknown]
  - Bilirubin conjugated increased [Unknown]
  - Gamma-glutamyltransferase increased [Unknown]
  - Blood alkaline phosphatase increased [Unknown]
  - Blood pressure increased [Unknown]
  - Heart rate increased [Unknown]
  - Ocular icterus [Unknown]
  - Yellow skin [Unknown]
  - Off label use [Recovered/Resolved]

NARRATIVE: CASE EVENT DATE: 20250621
